FAERS Safety Report 6732668-9 (Version None)
Quarter: 2010Q2

REPORT INFORMATION
  Report Type: 
  Country: None (occurrence: None)
  Receive Date: 20100519
  Receipt Date: 20090805
  Transmission Date: 20101027
  Serious: Yes (Other)
  Sender: FDA-Public Use
  Company Number: US-BRISTOL-MYERS SQUIBB COMPANY-14697031

PATIENT
  Age: 28 Year
  Sex: Male

DRUGS (2)
  1. BARACLUDE [Suspect]
     Route: 048
  2. VIREAD [Suspect]
     Route: 048

REACTIONS (2)
  - DRUG INEFFECTIVE [None]
  - HEPATITIS B DNA INCREASED [None]
